FAERS Safety Report 7808756-2 (Version None)
Quarter: 2011Q4

REPORT INFORMATION
  Report Type: 
  Country: None (occurrence: None)
  Receive Date: 20111007
  Receipt Date: 20110930
  Transmission Date: 20120403
  Serious: No
  Sender: FDA-Public Use
  Company Number: 2011GW000483

PATIENT
  Age: 64 Year
  Sex: Male
  Weight: 107.9561 kg

DRUGS (2)
  1. NITROGLYCERIN [Concomitant]
  2. MINITRAN [Suspect]
     Indication: CORONARY ARTERY DISEASE
     Dosage: 0.4 MG; TDER
     Route: 062
     Dates: start: 20110101

REACTIONS (5)
  - DEPRESSED LEVEL OF CONSCIOUSNESS [None]
  - DIZZINESS [None]
  - PRODUCT SUBSTITUTION ISSUE [None]
  - VERTIGO [None]
  - FALL [None]
